FAERS Safety Report 9135431 (Version 1)
Quarter: 2013Q1

REPORT INFORMATION
  Report Type: Spontaneous
  Country: JP (occurrence: JP)
  Receive Date: 20130304
  Receipt Date: 20130304
  Transmission Date: 20140127
  Serious: Yes (Other)
  Sender: FDA-Public Use
  Company Number: PHHY2013JP019641

PATIENT
  Sex: Female

DRUGS (3)
  1. INDOMETHACIN [Suspect]
     Indication: PATENT DUCTUS ARTERIOSUS
     Dosage: 0.25 MG/KGX1
  2. INDOMETHACIN [Suspect]
     Dosage: 0.25 MG/KGX2
  3. INDOMETHACIN [Suspect]
     Dosage: 0.25 MG/KGX3

REACTIONS (4)
  - Oliguria [Unknown]
  - Patent ductus arteriosus [Recovered/Resolved]
  - Cardiac murmur [Recovered/Resolved]
  - Hypertension [Unknown]
